FAERS Safety Report 4618696-8 (Version None)
Quarter: 2005Q1

REPORT INFORMATION
  Report Type: 
  Country: None (occurrence: None)
  Receive Date: 20050324
  Receipt Date: 20050308
  Transmission Date: 20050727
  Serious: Yes (Hospitalization)
  Sender: FDA-Public Use
  Company Number: USA050291540

PATIENT
  Age: 70 Year
  Sex: Female
  Weight: 64 kg

DRUGS (6)
  1. FORTEO [Suspect]
     Indication: OSTEOPOROSIS
     Dosage: 20 UG/1 DAY
     Dates: start: 20041113
  2. CANDESARTAN W/HYDROCHLOROTHIAZIDE [Concomitant]
  3. NORVASC [Concomitant]
  4. NOVOLOG [Concomitant]
  5. PRAVACHOL [Concomitant]
  6. COUMADIN [Concomitant]

REACTIONS (2)
  - COSTOCHONDRITIS [None]
  - PHARMACEUTICAL PRODUCT COMPLAINT [None]
